FAERS Safety Report 4289760-0 (Version None)
Quarter: 2004Q1

REPORT INFORMATION
  Report Type: 
  Country: None (occurrence: None)
  Receive Date: 20040206
  Receipt Date: 20030528
  Transmission Date: 20041129
  Serious: Yes (Hospitalization, Other)
  Sender: FDA-Public Use
  Company Number: HQWYE427102JUN03

PATIENT
  Age: 37 Year
  Sex: Female
  Weight: 59.47 kg

DRUGS (5)
  1. NORPLANT SYSTEM [Suspect]
     Indication: CONTRACEPTION
     Dosage: 6 CAPSULES, SUBCUTANEOUS
     Route: 058
  2. NORPLANT SYSTEM [Suspect]
     Dosage: 6 CAPSULES, SUBCUTANEOUS
     Route: 058
     Dates: end: 20030524
  3. HYDROXYCHLOROQUINE SULFATE [Concomitant]
  4. PREVACID [Concomitant]
  5. FOLIC ACID [Concomitant]

REACTIONS (4)
  - APPLICATION SITE BRUISING [None]
  - APPLICATION SITE SWELLING [None]
  - COMPLICATION OF DEVICE REMOVAL [None]
  - SYSTEMIC LUPUS ERYTHEMATOSUS [None]
